FAERS Safety Report 12864575 (Version 1)
Quarter: 2016Q4

REPORT INFORMATION
  Report Type: Spontaneous
  Country: US (occurrence: US)
  Receive Date: 20161020
  Receipt Date: 20161020
  Transmission Date: 20170207
  Serious: Yes (Other)
  Sender: FDA-Public Use
  Company Number: US-ASTRAZENECA-2016SF08702

PATIENT
  Age: 25990 Day
  Sex: Male

DRUGS (3)
  1. ASPIRIN. [Concomitant]
     Active Substance: ASPIRIN
     Route: 048
  2. REPATHA [Concomitant]
     Active Substance: EVOLOCUMAB
     Route: 065
  3. BRILINTA [Suspect]
     Active Substance: TICAGRELOR
     Indication: ACUTE CORONARY SYNDROME
     Route: 048
     Dates: start: 201511, end: 20161007

REACTIONS (2)
  - Coronary artery thrombosis [Unknown]
  - Vascular stent restenosis [Unknown]

NARRATIVE: CASE EVENT DATE: 20161007
